FAERS Safety Report 20012017 (Version 3)
Quarter: 2023Q2

REPORT INFORMATION
  Report Type: Report from Study
  Country: US (occurrence: US)
  Receive Date: 20211029
  Receipt Date: 20230607
  Transmission Date: 20230722
  Serious: Yes (Hospitalization, Other)
  Sender: FDA-Public Use
  Company Number: US-TAKEDA-US201936954

PATIENT
  Sex: Male
  Weight: 79 kg

DRUGS (42)
  1. HUMAN IMMUNOGLOBULIN G [Suspect]
     Active Substance: HUMAN IMMUNOGLOBULIN G
     Indication: Hypergammaglobulinaemia
     Dosage: 20 MILLIGRAM, Q2WEEKS
     Route: 058
  2. HUMAN IMMUNOGLOBULIN G [Suspect]
     Active Substance: HUMAN IMMUNOGLOBULIN G
     Indication: Immunodeficiency
     Dosage: 20 MILLIGRAM, Q2WEEKS
     Route: 058
     Dates: start: 20190928
  3. HUMAN IMMUNOGLOBULIN G [Suspect]
     Active Substance: HUMAN IMMUNOGLOBULIN G
     Dosage: 20 GRAM, Q2WEEKS
     Route: 058
     Dates: start: 20180930
  4. ACETAMINOPHEN [Concomitant]
     Active Substance: ACETAMINOPHEN
  5. DIPHENHYDRAMINE [Concomitant]
     Active Substance: DIPHENHYDRAMINE
  6. EPINEPHRINE [Concomitant]
     Active Substance: EPINEPHRINE
  7. LIDOCAINE [Concomitant]
     Active Substance: LIDOCAINE
  8. LASIX [Concomitant]
     Active Substance: FUROSEMIDE
  9. MOMETASONE FUROATE [Concomitant]
     Active Substance: MOMETASONE FUROATE
  10. BONIVA [Concomitant]
     Active Substance: IBANDRONATE SODIUM
  11. ADVAIR HFA [Concomitant]
     Active Substance: FLUTICASONE PROPIONATE\SALMETEROL XINAFOATE
  12. VALSARTAN [Concomitant]
     Active Substance: VALSARTAN
  13. TEA [Concomitant]
     Active Substance: TEA LEAF
  14. SIMVASTATIN [Concomitant]
     Active Substance: SIMVASTATIN
  15. LASIX [Concomitant]
     Active Substance: FUROSEMIDE
  16. VITAMIN C [Concomitant]
     Active Substance: ASCORBIC ACID
  17. VITAMIN D3 [Concomitant]
     Active Substance: CHOLECALCIFEROL
  18. XARELTO [Concomitant]
     Active Substance: RIVAROXABAN
  19. BUPROPION HYDROCHLORIDE [Concomitant]
     Active Substance: BUPROPION HYDROCHLORIDE
  20. FLUTICASONE PROPIONATE [Concomitant]
     Active Substance: FLUTICASONE PROPIONATE
  21. ANDROGEL [Concomitant]
     Active Substance: TESTOSTERONE
  22. SODIUM CHLORIDE [Concomitant]
     Active Substance: SODIUM CHLORIDE
  23. NYQUIL CHILDRENS [Concomitant]
  24. EPIGALLOCATECHIN GALLATE [Concomitant]
     Active Substance: EPIGALLOCATECHIN GALLATE
  25. Echinacea goldenseal [Concomitant]
  26. PREDNISONE [Concomitant]
     Active Substance: PREDNISONE
  27. PHENAZOPYRIDINE HYDROCHLORIDE [Concomitant]
     Active Substance: PHENAZOPYRIDINE HYDROCHLORIDE
  28. HERBALS [Concomitant]
     Active Substance: HERBALS
  29. EUCALYPTOL [Concomitant]
     Active Substance: EUCALYPTOL
  30. TAMSULOSIN HYDROCHLORIDE [Concomitant]
     Active Substance: TAMSULOSIN HYDROCHLORIDE
  31. CODEINE\PROMETHAZINE [Concomitant]
     Active Substance: CODEINE\PROMETHAZINE
  32. IBANDRONATE SODIUM [Concomitant]
     Active Substance: IBANDRONATE SODIUM
  33. LISINOPRIL [Concomitant]
     Active Substance: LISINOPRIL
  34. CARVEDILOL [Concomitant]
     Active Substance: CARVEDILOL
  35. Vick [Concomitant]
  36. ESCITALOPRAM OXALATE [Concomitant]
     Active Substance: ESCITALOPRAM OXALATE
  37. ELIQUIS [Concomitant]
     Active Substance: APIXABAN
  38. METOPROLOL SUCCINATE [Concomitant]
     Active Substance: METOPROLOL SUCCINATE
  39. POTASSIUM CHLORIDE [Concomitant]
     Active Substance: POTASSIUM CHLORIDE
  40. HERBALS\TURMERIC [Concomitant]
     Active Substance: HERBALS\TURMERIC
  41. XYOSTED [Concomitant]
     Active Substance: TESTOSTERONE ENANTHATE
  42. Glucosamin chondroitin [Concomitant]

REACTIONS (5)
  - Prostatic disorder [Unknown]
  - Post procedural haemorrhage [Unknown]
  - Nail hypertrophy [Unknown]
  - Application site laceration [Unknown]
  - Pruritus [Unknown]
